FAERS Safety Report 5108676-0 (Version None)
Quarter: 2006Q3

REPORT INFORMATION
  Report Type: 
  Country: None (occurrence: None)
  Receive Date: 20060915
  Receipt Date: 20060904
  Transmission Date: 20061208
  Serious: Yes (Other)
  Sender: FDA-Public Use
  Company Number: 2006088018

PATIENT
  Age: 58 Year
  Sex: Female
  Weight: 65 kg

DRUGS (10)
  1. LYRICA [Suspect]
     Indication: NEURALGIA
     Dosage: 100 MG (50 MG, 2 IN 1 D), ORAL
     Route: 048
     Dates: start: 20060609
  2. NEURONTIN [Suspect]
     Indication: DRUG USE FOR UNKNOWN INDICATION
     Dosage: 200 MG (100 MG, 2 IN 1 D), ORAL
     Route: 048
     Dates: start: 20040301, end: 20060609
  3. ALL OTHER THERAPEUTIC PRODUCTS (ALL OTHER THERAPEUTIC PRODUCTS) [Concomitant]
  4. DICLOFENAC SODIUM [Concomitant]
  5. ZYDOL (TRAMADOL HYDROCHLORIDE) [Concomitant]
  6. SOLPADOL (CODEINE PHOSPHATE, PARACETAMOL) [Concomitant]
  7. PROZAC [Concomitant]
  8. AMLODIPINE [Concomitant]
  9. CHEMOTHERAPY NOS (CHEMOTHERAPY NOS) [Concomitant]
  10. LISINOPRIL [Concomitant]

REACTIONS (5)
  - DRUG INEFFECTIVE [None]
  - DYSKINESIA [None]
  - DYSPHAGIA [None]
  - FACE OEDEMA [None]
  - INSOMNIA [None]
